FAERS Safety Report 7719566-9 (Version None)
Quarter: 2011Q3

REPORT INFORMATION
  Report Type: 
  Country: None (occurrence: None)
  Receive Date: 20110830
  Receipt Date: 20110824
  Transmission Date: 20111222
  Serious: Yes (Hospitalization)
  Sender: FDA-Public Use
  Company Number: US-BAYER-2011-004796

PATIENT
  Age: 36 Year
  Sex: Female
  Weight: 90.703 kg

DRUGS (15)
  1. YASMIN [Suspect]
     Indication: CONTRACEPTION
     Dosage: UNK
     Route: 048
     Dates: start: 20020101, end: 20090701
  2. LISINOPRIL [Concomitant]
     Dosage: 40 MG, UNK
     Route: 048
     Dates: start: 20080118, end: 20090721
  3. PROMETHAZINE [Concomitant]
     Dosage: 25 MG, UNK
     Route: 048
     Dates: start: 20090422
  4. PHENTERMINE [Concomitant]
  5. ZOCOR [Concomitant]
  6. CLINDAMYCIN [Concomitant]
     Dosage: 150 MG, UNK
     Route: 048
     Dates: start: 20090504
  7. ASPIRIN [Concomitant]
  8. DROSPIRENONE AND ETHINYL ESTRADIOL [Suspect]
     Indication: CONTRACEPTION
     Dosage: UNK
     Route: 048
     Dates: start: 20020101, end: 20090701
  9. CYCLOBENZAPRINE [Concomitant]
     Dosage: 10 MG, UNK
     Route: 048
     Dates: start: 20090422
  10. METOPROLOL TARTRATE [Concomitant]
  11. PLAVIX [Concomitant]
  12. PANTOPRAZOLE [Concomitant]
     Dosage: 40 MG, UNK
     Route: 048
     Dates: start: 20090414, end: 20090721
  13. APAP W/ CODEINE [Concomitant]
     Dosage: UNK
     Route: 048
     Dates: start: 20090422
  14. PROPOXYPHENE NAPSYLATE W/ ACETAMINOPHEN [Concomitant]
     Dosage: UNK
     Route: 048
     Dates: start: 20090504
  15. HYDROCHLOROTHIAZIDE [Concomitant]
     Dosage: 25 MG, UNK
     Route: 048
     Dates: start: 20080110, end: 20090721

REACTIONS (5)
  - MYOCARDIAL INFARCTION [None]
  - EMOTIONAL DISTRESS [None]
  - INJURY [None]
  - CORONARY ARTERY DISEASE [None]
  - PAIN [None]
